FAERS Safety Report 19414996 (Version 2)
Quarter: 2021Q2

REPORT INFORMATION
  Report Type: Other
  Country: US (occurrence: US)
  Receive Date: 20210615
  Receipt Date: 20210622
  Transmission Date: 20210717
  Serious: Yes (Hospitalization)
  Sender: FDA-Public Use
  Company Number: US-ROCHE-2844532

PATIENT
  Age: 71 Year
  Sex: Female
  Weight: 59.93 kg

DRUGS (6)
  1. PAROXETINE. [Concomitant]
     Active Substance: PAROXETINE
     Dosage: 2 TABS AT BED TIME
     Route: 048
     Dates: start: 1999
  2. INDERAL [Concomitant]
     Active Substance: PROPRANOLOL HYDROCHLORIDE
     Indication: TREMOR
     Route: 048
     Dates: start: 1999
  3. AUBAGIO [Concomitant]
     Active Substance: TERIFLUNOMIDE
  4. FENTANYL. [Concomitant]
     Active Substance: FENTANYL
     Dosage: 25 MCG PATCH EVERY 3 DAYS
     Dates: start: 2013
  5. ALEVE [Concomitant]
     Active Substance: NAPROXEN SODIUM
     Indication: PAIN
     Dosage: 2 TABS IN THE AM AND 2 TABS PM AT NIGHT
     Route: 048
  6. OCREVUS [Suspect]
     Active Substance: OCRELIZUMAB
     Indication: MULTIPLE SCLEROSIS
     Dosage: DOT:18/DEC/2020, 20/DEC/2019 AND 19/JUN/2020, //2011, //2018
     Route: 042
     Dates: start: 20190606

REACTIONS (19)
  - Coordination abnormal [Not Recovered/Not Resolved]
  - Osteoarthritis [Not Recovered/Not Resolved]
  - Fungal infection [Unknown]
  - Gastrointestinal disorder [Not Recovered/Not Resolved]
  - Infection [Unknown]
  - Cholecystitis acute [Not Recovered/Not Resolved]
  - Muscle spasms [Recovered/Resolved]
  - Abdominal pain [Unknown]
  - Gait disturbance [Not Recovered/Not Resolved]
  - Pain [Not Recovered/Not Resolved]
  - Urinary tract infection [Not Recovered/Not Resolved]
  - Encephalopathy [Not Recovered/Not Resolved]
  - Hypertension [Not Recovered/Not Resolved]
  - Delirium [Unknown]
  - Migraine [Not Recovered/Not Resolved]
  - Dementia [Not Recovered/Not Resolved]
  - Gastrooesophageal reflux disease [Not Recovered/Not Resolved]
  - Amnesia [Recovered/Resolved]
  - Anxiety [Not Recovered/Not Resolved]

NARRATIVE: CASE EVENT DATE: 20210421
